FAERS Safety Report 8824105 (Version 1)
Quarter: 2012Q4

REPORT INFORMATION
  Report Type: 
  Country: NO (occurrence: NO)
  Receive Date: 20121004
  Receipt Date: 20121004
  Transmission Date: 20130627
  Serious: Yes (Disabling, Other)
  Sender: FDA-Public Use
  Company Number: NO-ACCORD-014802

PATIENT
  Sex: Male

DRUGS (5)
  1. G-CSF [Concomitant]
     Dosage: 17.6x106 CD34+ stem cells per kg body weight
  2. ALLOPURINOL [Concomitant]
     Indication: PROPHYLAXIS
     Dosage: 600 mg, UNK
  3. ETOPOSIDE [Suspect]
     Indication: TESTICULAR CANCER
  4. CISPLATIN [Suspect]
     Indication: TESTICULAR CANCER
  5. IFOSFAMIDE [Suspect]
     Indication: TESTICULAR CANCER

REACTIONS (9)
  - Aplasia [Recovered/Resolved with Sequelae]
  - Enterocolitis [Recovered/Resolved]
  - Metastasis [Recovered/Resolved]
  - Teratoma [Recovered/Resolved]
  - Tinnitus [Recovered/Resolved with Sequelae]
  - Neuropathy peripheral [Recovered/Resolved with Sequelae]
  - Disturbance in attention [Recovered/Resolved with Sequelae]
  - Fatigue [Recovered/Resolved with Sequelae]
  - Off label use [Unknown]
